FAERS Safety Report 25904805 (Version 1)
Quarter: 2025Q4

REPORT INFORMATION
  Report Type: Spontaneous
  Country: US (occurrence: US)
  Receive Date: 20251010
  Receipt Date: 20251010
  Transmission Date: 20260118
  Serious: Yes (Other)
  Sender: AMNEAL
  Company Number: US-AMNEAL PHARMACEUTICALS-2025-AMRX-03866

PATIENT
  Sex: Male

DRUGS (2)
  1. CREXONT [Suspect]
     Active Substance: CARBIDOPA\LEVODOPA
     Indication: Parkinson^s disease
     Dosage: UNK
     Route: 048
  2. CREXONT [Suspect]
     Active Substance: CARBIDOPA\LEVODOPA
     Dosage: 70/280MG, 2 CAPSULES, 3X/DAY (INCREASED DOSE)
     Route: 048
     Dates: start: 20250930

REACTIONS (3)
  - Transient ischaemic attack [Unknown]
  - Dementia Alzheimer^s type [Unknown]
  - Dehydration [Unknown]
